FAERS Safety Report 13766946 (Version 1)
Quarter: 2017Q3

REPORT INFORMATION
  Report Type: Report from Study
  Country: US (occurrence: US)
  Receive Date: 20170719
  Receipt Date: 20170719
  Transmission Date: 20171127
  Serious: Yes (Hospitalization, Other)
  Sender: FDA-Public Use
  Company Number: US-EMD SERONO-E2B_80023980

PATIENT
  Age: 62 Year
  Sex: Male
  Weight: 61 kg

DRUGS (5)
  1. REBIF [Suspect]
     Active Substance: INTERFERON BETA-1A
     Indication: RELAPSING-REMITTING MULTIPLE SCLEROSIS
     Route: 058
     Dates: start: 20150629
  2. DOCUSATE SODIUM. [Concomitant]
     Active Substance: DOCUSATE SODIUM
     Indication: PRODUCT USED FOR UNKNOWN INDICATION
     Route: 048
  3. SENNA                              /00142201/ [Concomitant]
     Active Substance: SENNA LEAF
     Indication: PRODUCT USED FOR UNKNOWN INDICATION
     Route: 048
  4. REBIF [Suspect]
     Active Substance: INTERFERON BETA-1A
     Indication: SECONDARY PROGRESSIVE MULTIPLE SCLEROSIS
  5. TYLENOL [Concomitant]
     Active Substance: ACETAMINOPHEN
     Indication: PREMEDICATION

REACTIONS (15)
  - Balance disorder [Unknown]
  - Head injury [Recovered/Resolved]
  - Pneumothorax [Recovered/Resolved]
  - Thoracic vertebral fracture [Unknown]
  - Injection site hypoaesthesia [Not Recovered/Not Resolved]
  - Pneumonia aspiration [Recovered/Resolved]
  - Haemothorax [Unknown]
  - Clostridium difficile infection [Recovered/Resolved]
  - Chest injury [Recovered/Resolved]
  - Injury [Unknown]
  - Rib fracture [Unknown]
  - Fall [Unknown]
  - Injection site pain [Not Recovered/Not Resolved]
  - Hallucination [Unknown]
  - Asthenia [Recovering/Resolving]

NARRATIVE: CASE EVENT DATE: 201507
